FAERS Safety Report 16440492 (Version 4)
Quarter: 2019Q4

REPORT INFORMATION
  Report Type: Spontaneous
  Country: US (occurrence: US)
  Receive Date: 20190617
  Receipt Date: 20191121
  Transmission Date: 20200122
  Serious: No
  Sender: FDA-Public Use
  Company Number: US-BIOGEN-2019BI00749449

PATIENT
  Age: 41 Year
  Sex: Female

DRUGS (4)
  1. TECFIDERA [Suspect]
     Active Substance: DIMETHYL FUMARATE
     Indication: MULTIPLE SCLEROSIS
     Dosage: STARTING DOSE
     Route: 048
     Dates: start: 20190604, end: 20190610
  2. TECFIDERA [Suspect]
     Active Substance: DIMETHYL FUMARATE
     Route: 048
     Dates: start: 20190604
  3. TECFIDERA [Suspect]
     Active Substance: DIMETHYL FUMARATE
     Route: 065
     Dates: start: 20190524
  4. TECFIDERA [Suspect]
     Active Substance: DIMETHYL FUMARATE
     Dosage: MAINTENANCE DOSE
     Route: 048
     Dates: start: 20190611

REACTIONS (18)
  - Feeling hot [Unknown]
  - Abdominal distension [Unknown]
  - Product dose omission [Unknown]
  - Dyspepsia [Unknown]
  - Abdominal pain upper [Unknown]
  - Constipation [Unknown]
  - Flushing [Unknown]
  - Abdominal discomfort [Unknown]
  - Pruritus [Unknown]
  - Gastrooesophageal reflux disease [Not Recovered/Not Resolved]
  - Oropharyngeal pain [Unknown]
  - Flatulence [Unknown]
  - Postural orthostatic tachycardia syndrome [Unknown]
  - Headache [Unknown]
  - Anxiety [Not Recovered/Not Resolved]
  - Morning sickness [Unknown]
  - Multiple sclerosis [Unknown]
  - Motion sickness [Unknown]

NARRATIVE: CASE EVENT DATE: 20190611
